FAERS Safety Report 23907775 (Version 1)
Quarter: 2024Q2

REPORT INFORMATION
  Report Type: Spontaneous
  Country: DE (occurrence: DE)
  Receive Date: 20240528
  Receipt Date: 20240528
  Transmission Date: 20240716
  Serious: Yes (Hospitalization)
  Sender: FDA-Public Use
  Company Number: None

PATIENT
  Age: 69 Year
  Sex: Male
  Weight: 75 kg

DRUGS (1)
  1. PANTOPRAZOLE [Suspect]
     Active Substance: PANTOPRAZOLE
     Indication: Dyspepsia
     Dosage: 20MG
     Route: 048

REACTIONS (7)
  - Eye swelling [Recovered/Resolved]
  - Blister [Recovered/Resolved]
  - Swelling face [Recovered/Resolved]
  - Dyspnoea [Recovered/Resolved]
  - Erythema [Recovered/Resolved]
  - Pruritus [Recovered/Resolved]
  - Paraesthesia [Unknown]

NARRATIVE: CASE EVENT DATE: 20240428
